FAERS Safety Report 6223420-1 (Version None)
Quarter: 2009Q2

REPORT INFORMATION
  Report Type: 
  Country: None (occurrence: None)
  Receive Date: 20090611
  Receipt Date: 20090601
  Transmission Date: 20091009
  Serious: Yes (Hospitalization, Other)
  Sender: FDA-Public Use
  Company Number: TH-ABBOTT-09P-155-0579256-00

PATIENT
  Age: 60 Year
  Sex: Male

DRUGS (3)
  1. WARFARIN SODIUM [Suspect]
     Indication: DRUG USE FOR UNKNOWN INDICATION
     Dosage: ADJUSTED TO 7.5 MG DAILY
  2. CEFTRIAZONE [Concomitant]
     Indication: ESCHERICHIA INFECTION
     Route: 042
  3. HEPARIN [Concomitant]
     Indication: THROMBOSIS
     Dosage: NOT REPORTED

REACTIONS (1)
  - HAEMATOMA [None]
